FAERS Safety Report 6981311-2 (Version None)
Quarter: 2010Q3

REPORT INFORMATION
  Report Type: 
  Country: None (occurrence: None)
  Receive Date: 20100909
  Receipt Date: 20100831
  Transmission Date: 20110219
  Serious: Yes (Hospitalization)
  Sender: FDA-Public Use
  Company Number: A-US2010-39497

PATIENT
  Age: 49 Year
  Sex: Male

DRUGS (3)
  1. TRACLEER [Suspect]
     Indication: PULMONARY ARTERIAL HYPERTENSION
     Dosage: ORAL
     Route: 048
     Dates: start: 20081206
  2. TADALAFIL (TADALAFIL) [Concomitant]
  3. CALCIUM CHANNEL BLOCKERS [Concomitant]

REACTIONS (5)
  - ANAEMIA [None]
  - FALL [None]
  - HEAD INJURY [None]
  - OEDEMA [None]
  - PNEUMONIA [None]
